FAERS Safety Report 4443698-4 (Version None)
Quarter: 2004Q3

REPORT INFORMATION
  Report Type: 
  Country: None (occurrence: None)
  Receive Date: 20040908
  Receipt Date: 20040813
  Transmission Date: 20050211
  Serious: Yes (Other)
  Sender: FDA-Public Use
  Company Number: GB-ROCHE-377885

PATIENT
  Age: 41 Year
  Sex: Female
  Weight: 99.8 kg

DRUGS (1)
  1. XENICAL [Suspect]
     Indication: DRUG USE FOR UNKNOWN INDICATION
     Route: 048
     Dates: start: 20040806, end: 20040816

REACTIONS (4)
  - ABDOMINAL DISTENSION [None]
  - HAEMATEMESIS [None]
  - HAEMATOCHEZIA [None]
  - STEATORRHOEA [None]
